FAERS Safety Report 5932349-5 (Version None)
Quarter: 2008Q4

REPORT INFORMATION
  Report Type: 
  Country: None (occurrence: None)
  Receive Date: 20081009
  Receipt Date: 20080310
  Transmission Date: 20090506
  Serious: Yes (Other)
  Sender: FDA-Public Use
  Company Number: PHEH2006US00792

PATIENT
  Age: 40 Year
  Sex: Female
  Weight: 68 kg

DRUGS (10)
  1. ZOMETA [Suspect]
     Dosage: 4 MG,QD ; 4 MG, QD
     Dates: start: 20040801, end: 20041201
  2. ZOMETA [Suspect]
     Dosage: 4 MG,QD ; 4 MG, QD
     Dates: start: 20050420, end: 20051007
  3. TAXOTERE [Concomitant]
  4. KYTRIL [Concomitant]
  5. AMOXICILLIN [Concomitant]
  6. GEMZAR [Concomitant]
  7. CLEOCIN (CLINDAMYCIN HYDROCHLORIDE) [Concomitant]
  8. CELEXA [Concomitant]
  9. SYNTHROID [Concomitant]
  10. NAVELBINE ^GLAXO WELLCOME^ (VINORELBINE DITARTRATE) [Concomitant]

REACTIONS (14)
  - ALVEOLOPLASTY [None]
  - BONE DISORDER [None]
  - BREATH ODOUR [None]
  - DENTAL CARE [None]
  - DENTAL OPERATION [None]
  - GINGIVAL PAIN [None]
  - HYPOAESTHESIA [None]
  - IMPAIRED HEALING [None]
  - OSTEONECROSIS [None]
  - PAIN [None]
  - PARAESTHESIA [None]
  - SWELLING [None]
  - TOOTH ABSCESS [None]
  - TOOTH EXTRACTION [None]
